FAERS Safety Report 5652713-1 (Version None)
Quarter: 2008Q1

REPORT INFORMATION
  Report Type: 
  Country: None (occurrence: None)
  Receive Date: 20080305
  Receipt Date: 20080305
  Transmission Date: 20080703
  Serious: No
  Sender: FDA-Public Use
  Company Number: None

PATIENT
  Age: 59 Year
  Sex: Male
  Weight: 95.7 kg

DRUGS (1)
  1. VARENICLINE [Suspect]
     Indication: SMOKING CESSATION THERAPY
     Dosage: 1MG EVERY DAY PO
     Route: 048
     Dates: start: 20071201, end: 20071210

REACTIONS (3)
  - DEPRESSION [None]
  - EMOTIONAL DISTRESS [None]
  - NIGHTMARE [None]
